FAERS Safety Report 20583511 (Version 1)
Quarter: 2022Q1

REPORT INFORMATION
  Report Type: Spontaneous
  Country: CA (occurrence: None)
  Receive Date: 20220311
  Receipt Date: 20220311
  Transmission Date: 20220423
  Serious: Yes (Other)
  Sender: FDA-Public Use
  Company Number: CA-ROCHE-2931085

PATIENT
  Age: 67 Year
  Sex: Male
  Weight: 125 kg

DRUGS (7)
  1. RITUXIMAB [Suspect]
     Active Substance: RITUXIMAB
     Indication: Granulomatosis with polyangiitis
     Route: 042
  2. ACETAMINOPHEN [Concomitant]
     Active Substance: ACETAMINOPHEN
     Indication: Premedication
     Dosage: THERAPY DURATION: 1 DAY
  3. DIPHENHYDRAMINE [Concomitant]
     Active Substance: DIPHENHYDRAMINE
     Indication: Premedication
     Dosage: THERAPY DURATION: 1 DAY
  4. METHYLPREDNISOLONE [Concomitant]
     Active Substance: METHYLPREDNISOLONE
     Indication: Premedication
     Dosage: THERAPY DURATION: 1 DAY
  5. ROSUVASTATIN [Concomitant]
     Active Substance: ROSUVASTATIN
  6. SULFADIAZINE\TETROXOPRIM [Concomitant]
     Active Substance: SULFADIAZINE\TETROXOPRIM
  7. XARELTO [Concomitant]
     Active Substance: RIVAROXABAN

REACTIONS (6)
  - Off label use [Unknown]
  - Therapeutic response shortened [Unknown]
  - Blood pressure fluctuation [Unknown]
  - Eye injury [Unknown]
  - Headache [Unknown]
  - Inappropriate schedule of product administration [Unknown]
